FAERS Safety Report 7610516-2 (Version None)
Quarter: 2011Q3

REPORT INFORMATION
  Report Type: 
  Country: None (occurrence: None)
  Receive Date: 20110715
  Receipt Date: 20100108
  Transmission Date: 20111222
  Serious: Yes (Death, Other)
  Sender: FDA-Public Use
  Company Number: US-BAYER-201010382NA

PATIENT
  Age: 41 Year
  Sex: Female
  Weight: 60 kg

DRUGS (14)
  1. NITROGLYCERIN [Concomitant]
  2. NITROGLYCERIN [Concomitant]
     Dosage: TITRATED
     Dates: start: 20010116, end: 20010116
  3. LOVENOX [Concomitant]
  4. CARDIOPLEGIA [Concomitant]
     Dosage: UNK
     Dates: start: 20010116, end: 20010116
  5. LASIX [Concomitant]
     Dosage: 20 MG, QD
     Route: 048
  6. TRASYLOL [Suspect]
     Indication: PRODUCT USED FOR UNKNOWN INDICATION
     Dosage: LOADING DOSE - 200ML, THEN 50ML/HR
     Route: 042
     Dates: start: 20010116, end: 20010116
  7. HEPARIN [Concomitant]
     Dosage: 10ML/1000 UNITS - 7 DOSES
     Dates: start: 20010116, end: 20010116
  8. ACETYLSALICYLIC ACID SRT [Concomitant]
     Dosage: 325 MG, UNK
     Route: 048
  9. MANNITOL [Concomitant]
     Dosage: 12.5
     Dates: start: 20010116, end: 20010116
  10. PROTAMINE SULFATE [Concomitant]
     Dosage: 500MG
     Dates: start: 20010116, end: 20010116
  11. CAPTOPRIL [Concomitant]
     Dosage: 25 MG, BID
     Route: 048
  12. BENADRYL [Concomitant]
     Dosage: 50MG
     Dates: start: 20010116, end: 20010116
  13. TRASYLOL [Suspect]
     Indication: AORTIC SURGERY
  14. TRASYLOL [Suspect]
     Indication: CORONARY ARTERY BYPASS

REACTIONS (16)
  - CEREBROVASCULAR ACCIDENT [None]
  - CONVULSION [None]
  - PARESIS [None]
  - INJURY [None]
  - EMOTIONAL DISTRESS [None]
  - FEAR [None]
  - DEATH [None]
  - RENAL FAILURE [None]
  - STRESS [None]
  - ANHEDONIA [None]
  - UNEVALUABLE EVENT [None]
  - PAIN [None]
  - RENAL IMPAIRMENT [None]
  - MULTI-ORGAN FAILURE [None]
  - RENAL INJURY [None]
  - ANXIETY [None]
